FAERS Safety Report 9202140 (Version 1)
Quarter: 2013Q2

REPORT INFORMATION
  Report Type: Spontaneous
  Country: CA (occurrence: CA)
  Receive Date: 20130401
  Receipt Date: 20130401
  Transmission Date: 20140414
  Serious: Yes (Death)
  Sender: FDA-Public Use
  Company Number: CA-ASTRAZENECA-2013SE20089

PATIENT
  Age: 77 Year
  Sex: Male

DRUGS (21)
  1. SEROQUEL [Suspect]
     Indication: JOINT CONTRACTURE
     Route: 048
     Dates: start: 20061201
  2. SEROQUEL [Suspect]
     Indication: JOINT CONTRACTURE
     Route: 048
  3. SEROQUEL [Suspect]
     Indication: JOINT CONTRACTURE
     Route: 048
  4. SEROQUEL [Suspect]
     Indication: JOINT CONTRACTURE
     Route: 048
     Dates: end: 20090315
  5. RISPERIDONE [Concomitant]
  6. APOLEVOCARB [Concomitant]
  7. REMINYLER [Concomitant]
     Dosage: 24 MG-300 MG
  8. APOFLAVOXATE [Concomitant]
  9. APOGOMPERIGONE [Concomitant]
  10. CALCIUM [Concomitant]
  11. APOBADOFEN [Concomitant]
  12. LENOLTEC [Concomitant]
  13. THEOLAIR [Concomitant]
  14. APOVALPROIC [Concomitant]
  15. LORIZPANE [Concomitant]
  16. APOTRAZODONE [Concomitant]
  17. ATROVENTHASA [Concomitant]
  18. APOSALVENTCSC [Concomitant]
  19. TRAZDONE [Concomitant]
  20. PERCOCET [Concomitant]
     Indication: AGITATION
  21. MORPHINE [Concomitant]
     Indication: AGITATION

REACTIONS (9)
  - Pneumonia [Fatal]
  - Aspiration [Fatal]
  - Dysphagia [Fatal]
  - Thirst [Unknown]
  - Rash [Unknown]
  - Personality disorder [Unknown]
  - Choking [Unknown]
  - Asthenia [Unknown]
  - Intentional drug misuse [Unknown]
